FAERS Safety Report 8338256-5 (Version None)
Quarter: 2012Q2

REPORT INFORMATION
  Report Type: 
  Country: None (occurrence: None)
  Receive Date: 20120504
  Receipt Date: 20120426
  Transmission Date: 20120825
  Serious: Yes (Other)
  Sender: FDA-Public Use
  Company Number: JP-MERCK-1205USA00050

PATIENT
  Age: 72 Year
  Sex: Male

DRUGS (10)
  1. FERROUS CITRATE [Concomitant]
     Indication: ANAEMIA
     Dosage: DOSAGE IS UNCERTAIN DURING A DAY
     Route: 048
     Dates: start: 20120301
  2. GLIMICRON [Concomitant]
     Indication: TYPE 2 DIABETES MELLITUS
     Route: 048
     Dates: start: 20070401
  3. GLUCOBAY [Concomitant]
     Indication: DIABETES MELLITUS
     Route: 048
  4. ASPIRIN [Concomitant]
     Route: 048
     Dates: start: 20090101
  5. LIVALO [Concomitant]
     Indication: DYSLIPIDAEMIA
     Route: 048
     Dates: start: 20090101
  6. METFORMIN HCL [Concomitant]
     Indication: DIABETES MELLITUS
     Route: 048
  7. MICARDIS [Concomitant]
     Indication: HYPERTENSION
     Route: 048
     Dates: start: 20090101
  8. KINEDAK [Concomitant]
     Indication: DIABETIC NEUROPATHY
     Dosage: DOSAGE IS UNCERTAIN DURING A DAY
     Route: 048
  9. PURSENNID (SENNOSIDES) [Concomitant]
     Dosage: DOSAGE IS UNCERTAIN DURING A DAY
     Route: 048
  10. JANUVIA [Suspect]
     Indication: DIABETES MELLITUS
     Route: 048
     Dates: start: 20110117, end: 20120401

REACTIONS (1)
  - MUSCULOSKELETAL PAIN [None]
